FAERS Safety Report 8837917 (Version 2)
Quarter: 2012Q4

REPORT INFORMATION
  Report Type: Report from Study
  Country: US (occurrence: US)
  Receive Date: 20121012
  Receipt Date: 20121026
  Transmission Date: 20130627
  Serious: Yes (Death, Hospitalization, Other)
  Sender: FDA-Public Use
  Company Number: US-GENZYME-MOZO-1000759

PATIENT
  Age: 69 None
  Sex: Male
  Weight: 81 kg

DRUGS (10)
  1. MOZOBIL [Suspect]
     Indication: HAEMATOPOIETIC STEM CELL MOBILISATION
     Dosage: 58.275 mcg, qd, course 1
     Route: 042
     Dates: start: 20120926
  2. MITOXANTRONE [Suspect]
     Indication: ACUTE MYELOID LEUKAEMIA
     Dosage: UNK
     Route: 065
  3. ETOPOSIDE [Suspect]
     Indication: ACUTE MYELOID LEUKAEMIA
     Dosage: UNK
     Route: 065
  4. CYTARABINE [Suspect]
     Indication: ACUTE MYELOID LEUKAEMIA
     Dosage: UNK
     Route: 065
  5. CEFEPIME [Concomitant]
     Indication: PRODUCT USED FOR UNKNOWN INDICATION
     Dosage: UNK
     Route: 065
  6. TOBRAMYCIN [Concomitant]
     Indication: PRODUCT USED FOR UNKNOWN INDICATION
     Dosage: 565 mg, UNK
     Route: 065
  7. ZYVOX [Concomitant]
     Indication: PRODUCT USED FOR UNKNOWN INDICATION
     Dosage: UNK
     Route: 065
  8. ACYCLOVIR [Concomitant]
     Indication: PRODUCT USED FOR UNKNOWN INDICATION
     Dosage: UNK
     Route: 042
  9. CANCIDAS [Concomitant]
     Indication: PRODUCT USED FOR UNKNOWN INDICATION
     Dosage: UNK
     Route: 042
  10. ZITHROMAX [Concomitant]
     Indication: PRODUCT USED FOR UNKNOWN INDICATION
     Dosage: UNK
     Route: 065
     Dates: start: 2012

REACTIONS (18)
  - Bradycardia [Fatal]
  - Renal failure acute [Fatal]
  - Febrile neutropenia [Fatal]
  - Sepsis [Fatal]
  - Cardiac enzymes increased [Fatal]
  - Pneumonia [Fatal]
  - Blood pressure decreased [Fatal]
  - Confusional state [Fatal]
  - Cardiomyopathy [Fatal]
  - Venous pressure jugular increased [Fatal]
  - Syncope [Fatal]
  - Haemoglobin decreased [Fatal]
  - Thrombocytopenia [Fatal]
  - White blood cell count decreased [Fatal]
  - Prothrombin time prolonged [Fatal]
  - Hypoacusis [Fatal]
  - Fall [Fatal]
  - Diarrhoea [Fatal]
